FAERS Safety Report 14169844 (Version 2)
Quarter: 2018Q1

REPORT INFORMATION
  Report Type: Spontaneous
  Country: US (occurrence: US)
  Receive Date: 20171108
  Receipt Date: 20180123
  Transmission Date: 20180508
  Serious: No
  Sender: FDA-Public Use
  Company Number: US-GLAXOSMITHKLINE-US2017169203

PATIENT
  Age: 59 Year
  Sex: Female

DRUGS (13)
  1. LOSARTAN. [Concomitant]
     Active Substance: LOSARTAN
  2. TANZEUM [Suspect]
     Active Substance: ALBIGLUTIDE
     Indication: TYPE 2 DIABETES MELLITUS
     Dosage: 30 MG, WE
     Route: 058
     Dates: start: 2017
  3. DILANTIN [Concomitant]
     Active Substance: PHENYTOIN
  4. OXYBUTYNIN. [Concomitant]
     Active Substance: OXYBUTYNIN CHLORIDE
  5. METOPROLOL. [Concomitant]
     Active Substance: METOPROLOL
  6. GLUCOSAMINE [Concomitant]
     Active Substance: GLUCOSAMINE
  7. IBUPROFEN. [Concomitant]
     Active Substance: IBUPROFEN
  8. HYDROCHLOROTHIAZIDE. [Concomitant]
     Active Substance: HYDROCHLOROTHIAZIDE
  9. MACRODANTIN [Concomitant]
     Active Substance: NITROFURANTOIN
  10. VITAMIN D2 [Concomitant]
     Active Substance: ERGOCALCIFEROL
  11. TANZEUM [Suspect]
     Active Substance: ALBIGLUTIDE
     Dosage: UNK
  12. CHROMIUM [Concomitant]
     Active Substance: CHROMIC CHLORIDE\CHROMIUM
  13. SIMVASTATIN. [Concomitant]
     Active Substance: SIMVASTATIN

REACTIONS (6)
  - Circumstance or information capable of leading to medication error [Unknown]
  - Arthralgia [Not Recovered/Not Resolved]
  - Ill-defined disorder [Unknown]
  - Gait disturbance [Not Recovered/Not Resolved]
  - Contusion [Recovering/Resolving]
  - Drug ineffective [Not Recovered/Not Resolved]

NARRATIVE: CASE EVENT DATE: 201707
